FAERS Safety Report 4316430-2 (Version None)
Quarter: 2004Q1

REPORT INFORMATION
  Report Type: 
  Country: None (occurrence: None)
  Receive Date: 20040312
  Receipt Date: 20040312
  Transmission Date: 20041129
  Serious: Yes (Hospitalization)
  Sender: FDA-Public Use
  Company Number: None

PATIENT
  Age: 15 Month
  Sex: Female
  Weight: 11.3399 kg

DRUGS (1)
  1. PANCOF-PD [Suspect]
     Indication: COUGH
     Dosage: 1/4 TSP 6 HOURS
     Dates: start: 20031220, end: 20031227

REACTIONS (7)
  - BLOOD GLUCOSE DECREASED [None]
  - BRONCHITIS [None]
  - COMA [None]
  - CROUP INFECTIOUS [None]
  - CRYING [None]
  - DEHYDRATION [None]
  - HYPERSOMNIA [None]
